FAERS Safety Report 18740777 (Version 2)
Quarter: 2021Q2

REPORT INFORMATION
  Report Type: Report from Study
  Country: US (occurrence: US)
  Receive Date: 20210114
  Receipt Date: 20210628
  Transmission Date: 20210717
  Serious: Yes (Hospitalization, Other)
  Sender: FDA-Public Use
  Company Number: US-TAKEDA-2015BAX027154

PATIENT
  Age: 64 Year
  Sex: Female

DRUGS (1)
  1. HUMAN NORMAL IMMUNOGLOBULIN; LIQUID [Suspect]
     Active Substance: HUMAN IMMUNOGLOBULIN G
     Indication: PRIMARY IMMUNODEFICIENCY SYNDROME
     Dosage: UNK
     Route: 042

REACTIONS (10)
  - Colostomy [Unknown]
  - Cardiac failure congestive [Unknown]
  - Blood pressure increased [Unknown]
  - Oral candidiasis [Recovering/Resolving]
  - Swelling [Unknown]
  - Weight decreased [Unknown]
  - Ageusia [Unknown]
  - Thrombosis [Recovering/Resolving]
  - Anosmia [Unknown]
  - Feeding disorder [Unknown]

NARRATIVE: CASE EVENT DATE: 20210617
